FAERS Safety Report 7889556-4 (Version None)
Quarter: 2011Q4

REPORT INFORMATION
  Report Type: 
  Country: None (occurrence: None)
  Receive Date: 20111103
  Receipt Date: 20110127
  Transmission Date: 20120403
  Serious: No
  Sender: FDA-Public Use
  Company Number: US-BRISTOL-MYERS SQUIBB COMPANY-15513591

PATIENT

DRUGS (1)
  1. KENALOG-40 [Suspect]

REACTIONS (2)
  - DRUG ADMINISTRATION ERROR [None]
  - INJECTION SITE ATROPHY [None]
